FAERS Safety Report 17122279 (Version 2)
Quarter: 2020Q1

REPORT INFORMATION
  Report Type: Report from Study
  Country: NL (occurrence: NL)
  Receive Date: 20191206
  Receipt Date: 20200225
  Transmission Date: 20200409
  Serious: Yes (Hospitalization, Other)
  Sender: FDA-Public Use
  Company Number: NL-ASTRAZENECA-2019SF66231

PATIENT
  Age: 0 Year
  Sex: Female

DRUGS (3)
  1. SYNAGIS [Suspect]
     Active Substance: PALIVIZUMAB
     Indication: HEART DISEASE CONGENITAL
     Route: 030
     Dates: start: 20191029, end: 20191029
  2. SYNAGIS [Suspect]
     Active Substance: PALIVIZUMAB
     Indication: HEART DISEASE CONGENITAL
     Route: 030
     Dates: start: 20191127, end: 20191127
  3. SYNAGIS [Suspect]
     Active Substance: PALIVIZUMAB
     Indication: HEART DISEASE CONGENITAL
     Route: 030
     Dates: start: 20191224, end: 20191224

REACTIONS (5)
  - Cardiac disorder [Not Recovered/Not Resolved]
  - Ventricular septal defect [Recovered/Resolved]
  - Loss of consciousness [Not Recovered/Not Resolved]
  - Respiratory tract congestion [Unknown]
  - Discharge [Not Recovered/Not Resolved]

NARRATIVE: CASE EVENT DATE: 2019
